FAERS Safety Report 4438452-3 (Version None)
Quarter: 2004Q3

REPORT INFORMATION
  Report Type: 
  Country: None (occurrence: None)
  Receive Date: 20040728
  Receipt Date: 20040324
  Transmission Date: 20050211
  Serious: No
  Sender: FDA-Public Use
  Company Number: USA040363029

PATIENT
  Age: 12 Year
  Sex: Male
  Weight: 45 kg

DRUGS (1)
  1. STRATTERA [Suspect]
     Indication: DISTURBANCE IN ATTENTION
     Dosage: 60 MG DAILY
     Dates: start: 20040301, end: 20040320

REACTIONS (3)
  - DECREASED APPETITE [None]
  - HEADACHE [None]
  - PHARYNGITIS STREPTOCOCCAL [None]
